FAERS Safety Report 5116785-5 (Version None)
Quarter: 2006Q3

REPORT INFORMATION
  Report Type: 
  Country: None (occurrence: None)
  Receive Date: 20060928
  Receipt Date: 20060919
  Transmission Date: 20061208
  Serious: Yes (Hospitalization)
  Sender: FDA-Public Use
  Company Number: FR-SANOFI-SYNTHELABO-A01200607745

PATIENT
  Age: 64 Year
  Sex: Male

DRUGS (4)
  1. EZETRIL [Concomitant]
     Indication: HYPERCHOLESTEROLAEMIA
     Route: 065
  2. TAHOR [Concomitant]
     Indication: HYPERCHOLESTEROLAEMIA
     Route: 065
  3. MONO-TILDIEM [Concomitant]
     Indication: HYPERTENSION
     Route: 065
  4. PLAVIX [Suspect]
     Indication: ARTERITIS
     Route: 048

REACTIONS (1)
  - INTESTINAL ISCHAEMIA [None]
